FAERS Safety Report 24857781 (Version 1)
Quarter: 2025Q1

REPORT INFORMATION
  Report Type: Spontaneous
  Country: US (occurrence: US)
  Receive Date: 20250117
  Receipt Date: 20250117
  Transmission Date: 20250409
  Serious: Yes (Death, Other)
  Sender: Kenvue
  Company Number: US-KENVUE CANADA INC.-20250104503

PATIENT
  Age: 51 Year
  Sex: Female

DRUGS (2)
  1. DIPHENHYDRAMINE HYDROCHLORIDE [Suspect]
     Active Substance: DIPHENHYDRAMINE HYDROCHLORIDE
     Indication: Product used for unknown indication
     Route: 048
  2. SODIUM BICARBONATE [Suspect]
     Active Substance: SODIUM BICARBONATE
     Indication: Product used for unknown indication
     Route: 042

REACTIONS (21)
  - Intentional self-injury [Fatal]
  - Agitation [Fatal]
  - Paranoia [Fatal]
  - Pupil fixed [Fatal]
  - Dry skin [Fatal]
  - Blood pressure increased [Fatal]
  - Heart rate increased [Fatal]
  - Blood glucose increased [Fatal]
  - Blood lactic acid increased [Fatal]
  - PCO2 increased [Fatal]
  - Blood pH increased [Fatal]
  - PO2 decreased [Fatal]
  - Blood bicarbonate increased [Fatal]
  - Base excess increased [Fatal]
  - Pulmonary oedema [Fatal]
  - Cardiomegaly [Fatal]
  - Electrocardiogram QT prolonged [Fatal]
  - Electrocardiogram QRS complex prolonged [Fatal]
  - Cardiac arrest [Fatal]
  - Ventricular tachycardia [Fatal]
  - Intentional overdose [Fatal]
